FAERS Safety Report 7683080-X (Version None)
Quarter: 2011Q3

REPORT INFORMATION
  Report Type: 
  Country: None (occurrence: None)
  Receive Date: 20110815
  Receipt Date: 20110802
  Transmission Date: 20111222
  Serious: Yes (Hospitalization)
  Sender: FDA-Public Use
  Company Number: US-ELI_LILLY_AND_COMPANY-US201108002320

PATIENT
  Sex: Male

DRUGS (2)
  1. PAXIL [Concomitant]
     Indication: BIPOLAR DISORDER
  2. ZYPREXA [Suspect]
     Indication: BIPOLAR DISORDER
     Dosage: 20 MG, QD
     Dates: start: 20110719

REACTIONS (2)
  - DEPRESSION [None]
  - DRUG INEFFECTIVE [None]
